FAERS Safety Report 9100921 (Version 1)
Quarter: 2013Q1

REPORT INFORMATION
  Report Type: Spontaneous
  Country: US (occurrence: US)
  Receive Date: 20130215
  Receipt Date: 20130215
  Transmission Date: 20140127
  Serious: Yes (Hospitalization, Other)
  Sender: FDA-Public Use
  Company Number: US-JNJFOC-20130205970

PATIENT
  Sex: Female
  Weight: 61.24 kg

DRUGS (3)
  1. TOPAMAX [Suspect]
     Indication: MIGRAINE PROPHYLAXIS
     Route: 048
     Dates: start: 2011, end: 20121231
  2. TOPAMAX [Suspect]
     Indication: MIGRAINE PROPHYLAXIS
     Route: 048
     Dates: start: 2002, end: 2011
  3. TOPIRAMATE [Suspect]
     Indication: MIGRAINE PROPHYLAXIS
     Route: 048
     Dates: start: 2011, end: 2011

REACTIONS (4)
  - Knee arthroplasty [Unknown]
  - Deep vein thrombosis [Recovered/Resolved]
  - Pain [Not Recovered/Not Resolved]
  - Drug ineffective [Recovered/Resolved]
